FAERS Safety Report 13299406 (Version 1)
Quarter: 2017Q1

REPORT INFORMATION
  Report Type: Spontaneous
  Country: US (occurrence: US)
  Receive Date: 20170306
  Receipt Date: 20170306
  Transmission Date: 20170428
  Serious: Yes (Hospitalization, Other)
  Sender: FDA-Public Use
  Company Number: US-BAYER-2017-038923

PATIENT
  Age: 45 Year
  Sex: Male

DRUGS (8)
  1. LOSARTAN. [Concomitant]
     Active Substance: LOSARTAN
  2. LEVOTHYROXINE. [Concomitant]
     Active Substance: LEVOTHYROXINE
  3. DOCUSATE SODIUM. [Concomitant]
     Active Substance: DOCUSATE SODIUM
  4. GABAPENTIN. [Concomitant]
     Active Substance: GABAPENTIN
  5. FUROSEMIDE. [Concomitant]
     Active Substance: FUROSEMIDE
  6. AMIODARONE [Concomitant]
     Active Substance: AMIODARONE
  7. ACETYLSALICYLIC ACID({=100 MG) [Suspect]
     Active Substance: ASPIRIN
     Indication: CARDIAC FAILURE CONGESTIVE
     Dosage: 81 MG, QD
  8. ESOMEPRAZOLE [Concomitant]
     Active Substance: ESOMEPRAZOLE

REACTIONS (1)
  - Angina bullosa haemorrhagica [None]
